FAERS Safety Report 9872997 (Version 3)
Quarter: 2014Q1

REPORT INFORMATION
  Report Type: Spontaneous
  Country: US (occurrence: US)
  Receive Date: 20140206
  Receipt Date: 20140312
  Transmission Date: 20141002
  Serious: No
  Sender: FDA-Public Use
  Company Number: US-ACORDA-ACO_25171_2011

PATIENT
  Age: 47 Year
  Sex: Female
  Weight: 49.89 kg

DRUGS (3)
  1. AMPYRA [Suspect]
     Indication: GAIT DISTURBANCE
     Dosage: 10 MG, BID
     Route: 048
     Dates: start: 201105
  2. AMPYRA [Suspect]
     Indication: MULTIPLE SCLEROSIS
  3. AMPYRA [Suspect]
     Indication: ATAXIA

REACTIONS (2)
  - Fall [Recovered/Resolved]
  - Asthenia [Not Recovered/Not Resolved]
